FAERS Safety Report 4554648-4 (Version None)
Quarter: 2005Q1

REPORT INFORMATION
  Report Type: 
  Country: None (occurrence: None)
  Receive Date: 20041228
  Receipt Date: 20040625
  Transmission Date: 20050727
  Serious: No
  Sender: FDA-Public Use
  Company Number: ALMO2004028

PATIENT
  Age: 52 Year
  Sex: Female

DRUGS (3)
  1. ALMOGRAN [Suspect]
     Indication: MIGRAINE
     Dosage: 1 DF DAILY PO
     Route: 048
  2. PREVEX [Concomitant]
  3. PRITOR [Concomitant]

REACTIONS (1)
  - CHEST PAIN [None]
